FAERS Safety Report 6448922-4 (Version None)
Quarter: 2009Q4

REPORT INFORMATION
  Report Type: 
  Country: None (occurrence: None)
  Receive Date: 20091119
  Receipt Date: 20091119
  Transmission Date: 20100525
  Serious: No
  Sender: FDA-Public Use
  Company Number: None

PATIENT
  Age: 36 Year
  Sex: Male
  Weight: 93.8946 kg

DRUGS (1)
  1. WELLBUTRIN XL [Suspect]
     Indication: DEPRESSION
     Dosage: 300MG ONCE DAILY PO
     Route: 048

REACTIONS (2)
  - DIZZINESS [None]
  - PRODUCT SUBSTITUTION ISSUE [None]
